FAERS Safety Report 24560503 (Version 1)
Quarter: 2024Q4

REPORT INFORMATION
  Report Type: Spontaneous
  Country: US (occurrence: US)
  Receive Date: 20241029
  Receipt Date: 20241029
  Transmission Date: 20250114
  Serious: Yes (Other)
  Sender: GLENMARK
  Company Number: US-GLENMARK PHARMACEUTICALS-2024GMK094979

PATIENT

DRUGS (1)
  1. MUPIROCIN [Suspect]
     Active Substance: MUPIROCIN
     Indication: Wound
     Dosage: UNK
     Route: 045

REACTIONS (3)
  - Skin graft failure [Unknown]
  - Product use in unapproved indication [Unknown]
  - Recalled product administered [Unknown]
